FAERS Safety Report 8814328 (Version 1)
Quarter: 2012Q4

REPORT INFORMATION
  Report Type: Spontaneous
  Country: US (occurrence: None)
  Receive Date: 20120925
  Receipt Date: 20120925
  Transmission Date: 20130627
  Serious: Yes (Hospitalization)
  Sender: FDA-Public Use
  Company Number: UTC-023307

PATIENT
  Age: 56 Year
  Sex: Female
  Weight: 99.54 kg

DRUGS (3)
  1. REMODULIN [Suspect]
  2. REMODULIN [Suspect]
     Route: 035
  3. REVATIO (SILDENAFIL CITRATE) [Concomitant]

REACTIONS (2)
  - Chest pain [None]
  - Dyspnoea [None]
